FAERS Safety Report 4362297-6 (Version None)
Quarter: 2004Q2

REPORT INFORMATION
  Report Type: 
  Country: None (occurrence: None)
  Receive Date: 20040517
  Receipt Date: 20040511
  Transmission Date: 20050107
  Serious: Yes (Death)
  Sender: FDA-Public Use
  Company Number: US-JNJFOC-20040502467

PATIENT
  Age: 61 Year
  Sex: Female

DRUGS (1)
  1. SPORANOX [Suspect]
     Dates: end: 20040401

REACTIONS (1)
  - CARCINOMA [None]
